FAERS Safety Report 8141609-1 (Version None)
Quarter: 2012Q1

REPORT INFORMATION
  Report Type: 
  Country: None (occurrence: None)
  Receive Date: 20120216
  Receipt Date: 20120208
  Transmission Date: 20120608
  Serious: Yes (Hospitalization)
  Sender: FDA-Public Use
  Company Number: US-US-EMD SERONO, INC.-7074541

PATIENT
  Sex: Female

DRUGS (2)
  1. REBIF [Suspect]
     Indication: PRODUCT USED FOR UNKNOWN INDICATION
     Route: 058
     Dates: start: 20090824, end: 20110716
  2. REBIF [Suspect]
     Route: 058
     Dates: end: 20120109

REACTIONS (5)
  - URINARY TRACT INFECTION [None]
  - PYREXIA [None]
  - ERYTHEMA [None]
  - ASTHENIA [None]
  - CONVULSION [None]
